FAERS Safety Report 24328918 (Version 2)
Quarter: 2024Q4

REPORT INFORMATION
  Report Type: Spontaneous
  Country: US (occurrence: US)
  Receive Date: 20240917
  Receipt Date: 20241001
  Transmission Date: 20250115
  Serious: Yes (Hospitalization)
  Sender: AMERICAN REGENT
  Company Number: US-AMERICAN REGENT INC-2024003497

PATIENT
  Age: 43 Year
  Sex: Female

DRUGS (1)
  1. VENOFER [Suspect]
     Active Substance: IRON SUCROSE
     Indication: Blood loss anaemia
     Dosage: UNK, SINGLE
     Route: 065
     Dates: start: 20240908, end: 20240908

REACTIONS (4)
  - Hypercoagulation [Unknown]
  - Vaginal haemorrhage [Unknown]
  - Haemorrhage [Unknown]
  - Off label use [Unknown]

NARRATIVE: CASE EVENT DATE: 20240901
